FAERS Safety Report 5764589-2 (Version None)
Quarter: 2008Q2

REPORT INFORMATION
  Report Type: 
  Country: None (occurrence: None)
  Receive Date: 20080610
  Receipt Date: 20080529
  Transmission Date: 20081010
  Serious: Yes (Other)
  Sender: FDA-Public Use
  Company Number: US-PFIZER INC-2008046783

PATIENT
  Sex: Female

DRUGS (2)
  1. LYRICA [Suspect]
     Indication: CONVULSION
     Dates: start: 20080526, end: 20080526
  2. DILANTIN [Suspect]
     Indication: CONVULSION

REACTIONS (14)
  - ANXIETY [None]
  - ASTHENIA [None]
  - CONVULSION [None]
  - DRUG TOXICITY [None]
  - DYSARTHRIA [None]
  - FEELING OF RELAXATION [None]
  - HYPOGLYCAEMIA [None]
  - NERVOUSNESS [None]
  - PHARYNGEAL OEDEMA [None]
  - PHARYNGOLARYNGEAL DISCOMFORT [None]
  - PRE-ECLAMPSIA [None]
  - SOMNOLENCE [None]
  - THINKING ABNORMAL [None]
  - VISION BLURRED [None]
